FAERS Safety Report 7669398-5 (Version None)
Quarter: 2011Q3

REPORT INFORMATION
  Report Type: 
  Country: None (occurrence: None)
  Receive Date: 20110808
  Receipt Date: 20110729
  Transmission Date: 20111222
  Serious: Yes (Other)
  Sender: FDA-Public Use
  Company Number: GB-ROCHE-793959

PATIENT
  Sex: Female

DRUGS (2)
  1. CONTRACEPTIVE [Concomitant]
     Indication: CONTRACEPTION
     Route: 048
     Dates: start: 20110401
  2. ISOTRETINOIN [Suspect]
     Route: 048
     Dates: start: 20110504

REACTIONS (1)
  - ABORTION SPONTANEOUS [None]
